FAERS Safety Report 9929216 (Version 2)
Quarter: 2015Q1

REPORT INFORMATION
  Report Type: Report from Study
  Country: US (occurrence: US)
  Receive Date: 20140227
  Receipt Date: 20150330
  Transmission Date: 20150721
  Serious: Yes (Death, Other)
  Sender: FDA-Public Use
  Company Number: US-ROCHE-1327015

PATIENT
  Age: 47 Year
  Sex: Male
  Weight: 108.6 kg

DRUGS (36)
  1. XELODA [Suspect]
     Active Substance: CAPECITABINE
     Indication: BRAIN NEOPLASM MALIGNANT
     Dosage: START DATE 31/MAY/2011, 1/JUN/2011
     Route: 048
  2. RAPAMUNE [Concomitant]
     Active Substance: SIROLIMUS
     Route: 048
     Dates: start: 20110504
  3. ROCEPHIN [Concomitant]
     Active Substance: CEFTRIAXONE SODIUM
     Dosage: LEFT THIGH AS DIRECTED IN 1% LIDOCAINE, 04/MAY/2011
     Route: 065
  4. OXCARBAZEPINE. [Concomitant]
     Active Substance: OXCARBAZEPINE
     Route: 048
  5. AVASTIN [Suspect]
     Active Substance: BEVACIZUMAB
     Indication: BRAIN NEOPLASM MALIGNANT
     Dosage: 13/MAY/2011, 10/MAY/2011, 29/APR/2011, 15/APR/2011, 28/MAR/2011, 11/MAR/2011, 3/MAR/2011, 04/MAR/201
     Route: 042
  6. AVASTIN [Suspect]
     Active Substance: BEVACIZUMAB
     Indication: LYMPHOMA
     Dosage: 27/MAY/2011
     Route: 042
     Dates: start: 20110307
  7. LEVAQUIN [Concomitant]
     Active Substance: LEVOFLOXACIN
     Dosage: 19/MAY/2011,13/MAY/2011, 10/MAY/2011, 04/MAY/2011, 15/APR/2011
     Route: 048
  8. CITALOPRAM [Concomitant]
     Active Substance: CITALOPRAM HYDROBROMIDE
     Route: 048
  9. TRAZODONE [Concomitant]
     Active Substance: TRAZODONE HYDROCHLORIDE
     Dosage: AT BEDTIME
     Route: 048
  10. DEXTROMETHORPHAN [Concomitant]
     Active Substance: DEXTROMETHORPHAN
     Route: 048
  11. VANCOMYCIN [Concomitant]
     Active Substance: VANCOMYCIN
     Route: 042
     Dates: start: 20110322
  12. XELODA [Suspect]
     Active Substance: CAPECITABINE
     Dosage: 10/MAY/2011, 25/APR/2011
     Route: 048
  13. RAPAMUNE [Concomitant]
     Active Substance: SIROLIMUS
     Dosage: 1/JUN/2011, 27/MAY/2011, 19/MAY/2011
     Route: 048
  14. RAPAMUNE [Concomitant]
     Active Substance: SIROLIMUS
     Dosage: 25/APR/2011
     Route: 048
  15. RAPAMUNE [Concomitant]
     Active Substance: SIROLIMUS
     Dosage: INCREASED TO 3MG
     Route: 065
     Dates: start: 20110405, end: 20110412
  16. VALPROIC ACID. [Concomitant]
     Active Substance: VALPROIC ACID
     Route: 048
  17. DEXTROMETHORPHAN [Concomitant]
     Active Substance: DEXTROMETHORPHAN
     Route: 048
  18. LASIX [Concomitant]
     Active Substance: FUROSEMIDE
     Route: 042
     Dates: start: 20110318
  19. KCL-RETARD ZYMA [Concomitant]
     Dosage: 04/MAY/2011
     Route: 048
  20. DECADRON [Concomitant]
     Active Substance: DEXAMETHASONE
     Dosage: 27/MAY/2011, 29/APR/2011, 13/MAY/2011, 15/APR/2011,
     Route: 042
     Dates: start: 20110610
  21. DECADRON [Concomitant]
     Active Substance: DEXAMETHASONE
     Dosage: X4 PO
     Route: 048
     Dates: start: 20110330
  22. FLAGYL [Concomitant]
     Active Substance: METRONIDAZOLE\METRONIDAZOLE HYDROCHLORIDE
     Route: 048
  23. DEXTROMETHORPHAN [Concomitant]
     Active Substance: DEXTROMETHORPHAN
     Route: 042
     Dates: start: 20110304
  24. VANCOMYCIN [Concomitant]
     Active Substance: VANCOMYCIN
     Route: 042
     Dates: start: 20110322
  25. XELODA [Suspect]
     Active Substance: CAPECITABINE
     Indication: LYMPHOMA
     Dosage: START DATE 19/MAY/2011, 13/MAY/2011, 04/MAY/2011, 21/APR/2011, 25/APR/2011
     Route: 048
  26. CELEBREX [Concomitant]
     Active Substance: CELECOXIB
     Dosage: 1/JUN/2011
     Route: 048
  27. CLONIDINE. [Concomitant]
     Active Substance: CLONIDINE
     Route: 048
     Dates: start: 20110330
  28. SOLU-MEDROL [Concomitant]
     Active Substance: METHYLPREDNISOLONE SODIUM SUCCINATE
     Route: 042
  29. AVASTIN [Suspect]
     Active Substance: BEVACIZUMAB
     Indication: ANAPLASTIC ASTROCYTOMA
     Route: 042
  30. DECADRON [Concomitant]
     Active Substance: DEXAMETHASONE
     Dosage: X1
     Route: 048
     Dates: start: 20110314
  31. CELEBREX [Concomitant]
     Active Substance: CELECOXIB
     Dosage: 27/MAY/2011, 13/MAY/2011
     Route: 048
  32. VOTRIENT [Concomitant]
     Active Substance: PAZOPANIB HYDROCHLORIDE
     Route: 048
     Dates: end: 20110317
  33. DECADRON [Concomitant]
     Active Substance: DEXAMETHASONE
     Dosage: 27/MAY/2011, 19/MAY/2011, 13/MAY/2011, 04/MAY/2011
     Route: 048
  34. ALDACTONE (UNITED STATES) [Concomitant]
     Route: 048
  35. VOTRIENT [Concomitant]
     Active Substance: PAZOPANIB HYDROCHLORIDE
     Route: 048
     Dates: start: 20110307
  36. ZYVOX [Concomitant]
     Active Substance: LINEZOLID
     Dosage: 15/APR/2011
     Route: 048

REACTIONS (21)
  - Death [Fatal]
  - Hyperhidrosis [Unknown]
  - Asthenia [Unknown]
  - Joint swelling [Unknown]
  - Hypertension [Not Recovered/Not Resolved]
  - Ecchymosis [Unknown]
  - Productive cough [Unknown]
  - Dyspnoea [Unknown]
  - Fatigue [Unknown]
  - Discomfort [Unknown]
  - Cough [Unknown]
  - Dysuria [Unknown]
  - Blood pressure increased [Recovered/Resolved]
  - Pyrexia [Unknown]
  - Rash [Unknown]
  - Dysphagia [Unknown]
  - Nausea [Unknown]
  - Headache [Unknown]
  - Vomiting [Unknown]
  - Incontinence [Unknown]
  - Malaise [Unknown]

NARRATIVE: CASE EVENT DATE: 20110425
